FAERS Safety Report 5259576-7 (Version None)
Quarter: 2007Q1

REPORT INFORMATION
  Report Type: 
  Country: None (occurrence: None)
  Receive Date: 20070306
  Receipt Date: 20070220
  Transmission Date: 20070707
  Serious: Yes (Hospitalization)
  Sender: FDA-Public Use
  Company Number: 2007AL000726

PATIENT
  Age: 59 Year
  Sex: Female

DRUGS (3)
  1. ALPRAZOLAM [Suspect]
     Indication: ANXIETY
     Dosage: 0.5  MG;Q12H;PO
     Route: 048
  2. PAROXETINE HCL [Concomitant]
  3. DIPOTASSIUM CLORAZEPATE [Concomitant]

REACTIONS (5)
  - ANGIOEDEMA [None]
  - DYSPNOEA [None]
  - DYSTONIA [None]
  - EXTRAPYRAMIDAL DISORDER [None]
  - SWOLLEN TONGUE [None]
